FAERS Safety Report 5807782-2 (Version None)
Quarter: 2008Q3

REPORT INFORMATION
  Report Type: 
  Country: None (occurrence: None)
  Receive Date: 20080711
  Receipt Date: 20080701
  Transmission Date: 20090109
  Serious: Yes (Hospitalization)
  Sender: FDA-Public Use
  Company Number: CN-ROCHE-574151

PATIENT
  Age: 51 Year
  Sex: Male

DRUGS (5)
  1. PEGASYS [Suspect]
     Indication: HEPATITIS C
     Route: 058
     Dates: start: 20060101
  2. PEGASYS [Suspect]
     Route: 058
     Dates: start: 20070828, end: 20080425
  3. PEGASYS [Suspect]
     Dosage: STRENGTH REPORTED AS: 135 MCG.
     Route: 058
     Dates: start: 20080502, end: 20080501
  4. PEGASYS [Suspect]
     Dosage: STRENGTH REPORTED AS: 180 MCG.
     Route: 058
     Dates: start: 20080601
  5. INTERFERON [Concomitant]
     Dates: start: 19960101

REACTIONS (1)
  - SYNCOPE [None]
